FAERS Safety Report 6239325-6 (Version None)
Quarter: 2009Q2

REPORT INFORMATION
  Report Type: 
  Country: None (occurrence: None)
  Receive Date: 20090622
  Receipt Date: 20090618
  Transmission Date: 20091009
  Serious: Yes (Death, Hospitalization)
  Sender: FDA-Public Use
  Company Number: PHHY2009MT24293

PATIENT
  Age: 23 Year
  Sex: Male

DRUGS (2)
  1. CATAFLAM [Suspect]
     Dosage: 50 MG, UNK
     Route: 048
  2. QUINOLONE NOS [Concomitant]

REACTIONS (2)
  - BRAIN INJURY [None]
  - CONVULSION [None]
